FAERS Safety Report 9633510 (Version 12)
Quarter: 2014Q2

REPORT INFORMATION
  Report Type: Report from Study
  Country: AU (occurrence: AU)
  Receive Date: 20131021
  Receipt Date: 20140508
  Transmission Date: 20141212
  Serious: Yes (Hospitalization, Other)
  Sender: FDA-Public Use
  Company Number: PHHY2013AU117370

PATIENT
  Age: 55 Year
  Sex: Male

DRUGS (1)
  1. CLOZARIL [Suspect]
     Dosage: 400 MG, DAILY
     Dates: start: 20050905, end: 20140324

REACTIONS (10)
  - Lymphoma [Unknown]
  - Seminoma [Unknown]
  - Germ cell cancer [Unknown]
  - Mental impairment [Unknown]
  - Blood count abnormal [Not Recovered/Not Resolved]
  - Fall [Unknown]
  - Neutropenia [Unknown]
  - White blood cell count decreased [Unknown]
  - Platelet count decreased [Unknown]
  - Anaemia [Unknown]
